FAERS Safety Report 25499033 (Version 3)
Quarter: 2025Q3

REPORT INFORMATION
  Report Type: Spontaneous
  Country: US (occurrence: US)
  Receive Date: 20250701
  Receipt Date: 20250805
  Transmission Date: 20251020
  Serious: No
  Sender: BOEHRINGER INGELHEIM
  Company Number: US-BoehringerIngelheim-2025-BI-079764

PATIENT
  Age: 55 Year
  Sex: Male

DRUGS (3)
  1. ADALIMUMAB-ADBM [Suspect]
     Active Substance: ADALIMUMAB-ADBM
     Indication: Rheumatoid arthritis
     Dates: start: 20250627
  2. MELOXICAM [Concomitant]
     Active Substance: MELOXICAM
     Indication: Product used for unknown indication
  3. LEVOTHYROXINE [Concomitant]
     Active Substance: LEVOTHYROXINE
     Indication: Product used for unknown indication

REACTIONS (3)
  - Wrong technique in product usage process [Recovered/Resolved]
  - Device malfunction [Recovered/Resolved]
  - Incorrect dose administered [Not Recovered/Not Resolved]

NARRATIVE: CASE EVENT DATE: 20250627
